FAERS Safety Report 10648974 (Version 4)
Quarter: 2015Q1

REPORT INFORMATION
  Report Type: Spontaneous
  Country: US (occurrence: US)
  Receive Date: 20141212
  Receipt Date: 20150203
  Transmission Date: 20150720
  Serious: Yes (Other)
  Sender: FDA-Public Use
  Company Number: US-TEVA-528438USA

PATIENT
  Sex: Female

DRUGS (1)
  1. PARAGARD T 380A [Suspect]
     Active Substance: COPPER
     Indication: CONTRACEPTION
     Route: 015
     Dates: start: 20051214

REACTIONS (5)
  - Device breakage [Unknown]
  - Device dislocation [Unknown]
  - Embedded device [Unknown]
  - Vaginal haemorrhage [Unknown]
  - Metrorrhagia [Unknown]
